FAERS Safety Report 21143547 (Version 1)
Quarter: 2022Q3

REPORT INFORMATION
  Report Type: Spontaneous
  Country: US (occurrence: None)
  Receive Date: 20220728
  Receipt Date: 20220728
  Transmission Date: 20221027
  Serious: No
  Sender: FDA-Public Use
  Company Number: None

PATIENT
  Age: 49 Year
  Sex: Female
  Weight: 88.9 kg

DRUGS (4)
  1. ENBREL [Suspect]
     Active Substance: ETANERCEPT
     Indication: Spinal osteoarthritis
     Dosage: FREQUENCY : WEEKLY;?
     Route: 058
     Dates: start: 202004
  2. ENBREL [Suspect]
     Active Substance: ETANERCEPT
     Indication: Trigger finger
  3. ENBREL [Suspect]
     Active Substance: ETANERCEPT
     Indication: Fibromyalgia
  4. ENBREL [Suspect]
     Active Substance: ETANERCEPT
     Indication: Ankylosing spondylitis

REACTIONS (1)
  - Sepsis [None]
